FAERS Safety Report 25213255 (Version 2)
Quarter: 2025Q2

REPORT INFORMATION
  Report Type: Spontaneous
  Country: FR (occurrence: FR)
  Receive Date: 20250418
  Receipt Date: 20250423
  Transmission Date: 20250717
  Serious: Yes (Other)
  Sender: SANOFI AVENTIS
  Company Number: FR-MLMSERVICE-20250408-PI466864-00249-1

PATIENT
  Age: 43 Year
  Sex: Female

DRUGS (10)
  1. OXALIPLATIN [Interacting]
     Active Substance: OXALIPLATIN
     Indication: Colorectal cancer metastatic
     Dosage: 85 MG/M2, QOW
     Route: 042
     Dates: start: 202312
  2. IRINOTECAN [Interacting]
     Active Substance: IRINOTECAN
     Indication: Colorectal cancer metastatic
     Dosage: 180 MG/M2, QOW
     Route: 042
     Dates: start: 202312
  3. LEUCOVORIN [Interacting]
     Active Substance: LEUCOVORIN\LEUCOVORIN CALCIUM
     Indication: Colorectal cancer metastatic
     Route: 042
     Dates: start: 202312
  4. FLUOROURACIL [Interacting]
     Active Substance: FLUOROURACIL
     Indication: Colorectal cancer metastatic
     Dosage: 2800  MG/M2, QOW
     Route: 042
     Dates: start: 202312
  5. HERBALS [Interacting]
     Active Substance: HERBALS
     Indication: Supplementation therapy
     Dosage: UNK UNK, QD, POWDER-BASED SUPPLEMENT CAPSULES
     Dates: start: 202311, end: 20231219
  6. HERBALS [Interacting]
     Active Substance: HERBALS
     Indication: Supplementation therapy
     Dosage: UNK UNK, QD, POWDER-BASED SUPPLEMENT CAPSULES
     Dates: start: 202311, end: 20231219
  7. ENOXAPARIN [Concomitant]
     Active Substance: ENOXAPARIN
     Indication: Anticoagulant therapy
     Dosage: 4000 IU, QD
     Dates: start: 20231116, end: 20231121
  8. ACETAMINOPHEN [Concomitant]
     Active Substance: ACETAMINOPHEN
     Indication: Analgesic therapy
     Dosage: 1000 MG, TID
     Route: 048
  9. TRAMADOL [Concomitant]
     Active Substance: TRAMADOL
     Indication: Analgesic therapy
     Dosage: 50 MG, TID
     Route: 048
  10. FLUTICASONE [Concomitant]
     Active Substance: FLUTICASONE
     Indication: Rhinitis allergic
     Route: 045

REACTIONS (4)
  - Hepatic cytolysis [Recovering/Resolving]
  - Drug interaction [Recovering/Resolving]
  - Cholestasis [Recovering/Resolving]
  - Hepatic steatosis [Recovering/Resolving]

NARRATIVE: CASE EVENT DATE: 20230101
